FAERS Safety Report 6292567-6 (Version None)
Quarter: 2009Q3

REPORT INFORMATION
  Report Type: 
  Country: None (occurrence: None)
  Receive Date: 20090731
  Receipt Date: 20090723
  Transmission Date: 20100115
  Serious: Yes (Hospitalization)
  Sender: FDA-Public Use
  Company Number: AU-ASTRAZENECA-2009SE05735

PATIENT
  Age: 22314 Day
  Weight: 97 kg

DRUGS (5)
  1. ATACAND HCT [Suspect]
     Indication: ESSENTIAL HYPERTENSION
     Dosage: 16/12.5, 1 DOSE UNSPECIFIED DAILY
     Route: 048
     Dates: start: 20080115, end: 20081212
  2. DIAMICRON [Suspect]
     Indication: DIABETES MELLITUS
     Dosage: 2 DOSE UNSPECIFIED DAILY
     Route: 048
  3. METFORMIN HYDROCHLORIDE [Concomitant]
     Indication: DIABETES MELLITUS
  4. SERETIDE MDI [Concomitant]
     Indication: ASTHMA
  5. SOMAC [Concomitant]
     Indication: OESOPHAGEAL DISORDER

REACTIONS (5)
  - HYPOCALCAEMIA [None]
  - HYPOKALAEMIA [None]
  - HYPOMAGNESAEMIA [None]
  - MUSCLE SPASMS [None]
  - TETANY [None]
